FAERS Safety Report 5970781-4 (Version None)
Quarter: 2008Q4

REPORT INFORMATION
  Report Type: 
  Country: None (occurrence: None)
  Receive Date: 20081126
  Receipt Date: 20081113
  Transmission Date: 20090506
  Serious: No
  Sender: FDA-Public Use
  Company Number: US-ABBOTT-08P-163-0487757-00

PATIENT
  Sex: Female

DRUGS (2)
  1. SIMCOR [Suspect]
     Indication: BLOOD CHOLESTEROL INCREASED
     Route: 048
     Dates: start: 20081001
  2. BENECAR [Concomitant]
     Indication: HYPERTENSION

REACTIONS (6)
  - DYSPEPSIA [None]
  - ERYTHEMA [None]
  - FLUSHING [None]
  - PAIN [None]
  - SENSATION OF FOREIGN BODY [None]
  - SKIN BURNING SENSATION [None]
